FAERS Safety Report 16644635 (Version 1)
Quarter: 2019Q3

REPORT INFORMATION
  Report Type: Spontaneous
  Country: US (occurrence: US)
  Receive Date: 20190729
  Receipt Date: 20190729
  Transmission Date: 20191004
  Serious: No
  Sender: FDA-Public Use
  Company Number: US-SA-2019SA197660

PATIENT
  Age: 55 Year
  Sex: Male
  Weight: 120 kg

DRUGS (1)
  1. DUPIXENT [Suspect]
     Active Substance: DUPILUMAB
     Indication: DERMATITIS ATOPIC
     Dosage: 300 MG, QOW
     Route: 058
     Dates: start: 20190601

REACTIONS (8)
  - Oropharyngeal pain [Unknown]
  - Fatigue [Unknown]
  - Oral herpes [Unknown]
  - Acne [Unknown]
  - Acne [Unknown]
  - Oral pain [Unknown]
  - Folliculitis [Unknown]
  - Testicular swelling [Unknown]

NARRATIVE: CASE EVENT DATE: 2019
